FAERS Safety Report 10754506 (Version 1)
Quarter: 2015Q1

REPORT INFORMATION
  Report Type: Spontaneous
  Country: US (occurrence: US)
  Receive Date: 20150202
  Receipt Date: 20150202
  Transmission Date: 20150721
  Serious: No
  Sender: FDA-Public Use
  Company Number: US-BAYER-2015-011852

PATIENT
  Sex: Female

DRUGS (2)
  1. CLIMARA [Suspect]
     Active Substance: ESTRADIOL
     Indication: HOT FLUSH
     Dosage: UNK
     Route: 062
  2. CLIMARA [Suspect]
     Active Substance: ESTRADIOL
     Indication: HOT FLUSH
     Dosage: UNK
     Route: 062

REACTIONS (7)
  - Dizziness [None]
  - Therapeutic response unexpected [None]
  - Onychoclasis [None]
  - Product adhesion issue [None]
  - Balance disorder [None]
  - Drug intolerance [None]
  - Hair disorder [None]
